FAERS Safety Report 9060379 (Version 1)
Quarter: 2013Q1

REPORT INFORMATION
  Report Type: Spontaneous
  Country: MA (occurrence: MA)
  Receive Date: 20130212
  Receipt Date: 20130212
  Transmission Date: 20140127
  Serious: Yes (Other)
  Sender: FDA-Public Use
  Company Number: MA-JHP PHARMACEUTICALS, LLC-JHP201300062

PATIENT
  Age: 42 Year
  Sex: Female
  Weight: 74 kg

DRUGS (12)
  1. ADRENALIN [Suspect]
     Indication: ANAPHYLACTIC SHOCK
     Dosage: 5 MG, BOLUS
     Route: 042
  2. ADRENALIN [Suspect]
     Dosage: 0.03 UG/KG/MIN INCREASED TO 0.5 UG/KG/MIN
     Route: 042
  3. EPHEDRINE [Suspect]
     Indication: ANAPHYLACTIC SHOCK
     Dosage: 30 MG, UNK
  4. DOBUTAMINE [Suspect]
     Indication: ANAPHYLACTIC SHOCK
  5. AMLODIPIN [Concomitant]
     Indication: HYPERTENSION
  6. HYDROXYZINE [Concomitant]
     Dosage: 75 MG, UNK
     Route: 048
  7. MIDAZOLAM [Concomitant]
     Indication: INDUCTION OF ANAESTHESIA
     Dosage: 2 MG, UNK
  8. FENTANYL [Concomitant]
     Indication: INDUCTION OF ANAESTHESIA
     Dosage: 250 ?G, UNK
  9. ETOMIDATE [Concomitant]
     Indication: INDUCTION OF ANAESTHESIA
     Dosage: 18 MG, UNK
  10. LIDOCAINE [Concomitant]
     Indication: INDUCTION OF ANAESTHESIA
     Dosage: 80 MG, UNK
  11. ROCURONIUM [Concomitant]
     Dosage: 35 MG, UNK
  12. ISOFLURANE [Concomitant]
     Indication: GENERAL ANAESTHESIA
     Dosage: IN NITROUS OXIDE AND OXYGEN

REACTIONS (1)
  - Drug ineffective [Recovered/Resolved]
